FAERS Safety Report 7097050-6 (Version None)
Quarter: 2010Q4

REPORT INFORMATION
  Report Type: 
  Country: None (occurrence: None)
  Receive Date: 20101111
  Receipt Date: 20101109
  Transmission Date: 20110411
  Serious: Yes (Other)
  Sender: FDA-Public Use
  Company Number: US-BAYER-201030974NA

PATIENT
  Sex: Female

DRUGS (1)
  1. AVELOX [Suspect]
     Indication: UPPER RESPIRATORY TRACT INFECTION
     Route: 048
     Dates: start: 20090101

REACTIONS (6)
  - ANAPHYLACTIC SHOCK [None]
  - FACE OEDEMA [None]
  - PERIORBITAL OEDEMA [None]
  - PRURITUS [None]
  - RASH [None]
  - WHEEZING [None]
